FAERS Safety Report 15797921 (Version 1)
Quarter: 2019Q1

REPORT INFORMATION
  Report Type: Spontaneous
  Country: US (occurrence: US)
  Receive Date: 20190108
  Receipt Date: 20190108
  Transmission Date: 20190417
  Serious: No
  Sender: FDA-Public Use
  Company Number: US-GLAXOSMITHKLINE-US2018GSK235854

PATIENT
  Sex: Female

DRUGS (3)
  1. NUCALA [Suspect]
     Active Substance: MEPOLIZUMAB
     Dosage: Q4 WEEKS
     Dates: start: 20181024
  2. NUCALA [Suspect]
     Active Substance: MEPOLIZUMAB
     Indication: PRODUCT USED FOR UNKNOWN INDICATION
     Dosage: Q4 WEEKS
     Dates: start: 20180830
  3. NUCALA [Suspect]
     Active Substance: MEPOLIZUMAB
     Dosage: Q4 WEEKS
     Dates: start: 20181130

REACTIONS (2)
  - Skin discolouration [Recovered/Resolved]
  - Swelling [Unknown]
